FAERS Safety Report 8421305 (Version 3)
Quarter: 2013Q2

REPORT INFORMATION
  Report Type: Spontaneous
  Country: US (occurrence: US)
  Receive Date: 20120222
  Receipt Date: 20130409
  Transmission Date: 20140414
  Serious: Yes (Other)
  Sender: FDA-Public Use
  Company Number: US-US-EMD SERONO, INC.-7109058

PATIENT
  Age: 43 Year
  Sex: Female
  Weight: 59 kg

DRUGS (8)
  1. REBIF [Suspect]
     Indication: MULTIPLE SCLEROSIS
     Route: 058
     Dates: start: 20080724
  2. REBIF [Suspect]
     Route: 058
     Dates: start: 20111219
  3. REBIF [Suspect]
     Route: 058
     Dates: start: 20120124
  4. REBIF [Suspect]
     Route: 058
     Dates: start: 20130319
  5. PROVIGIL [Concomitant]
     Indication: NARCOLEPSY
  6. PROVIGIL [Concomitant]
     Indication: FATIGUE
  7. DETROL LA [Concomitant]
     Indication: INCONTINENCE
  8. TYLENOL EXTRA STRENGTH [Concomitant]
     Indication: PREMEDICATION

REACTIONS (6)
  - Optic neuritis [Unknown]
  - Convulsion [Unknown]
  - Mobility decreased [Not Recovered/Not Resolved]
  - Weight decreased [Not Recovered/Not Resolved]
  - Emotional distress [Not Recovered/Not Resolved]
  - Multiple sclerosis relapse [Not Recovered/Not Resolved]
